FAERS Safety Report 17163939 (Version 2)
Quarter: 2019Q4

REPORT INFORMATION
  Report Type: Spontaneous
  Country: TW (occurrence: TW)
  Receive Date: 20191217
  Receipt Date: 20191228
  Transmission Date: 20200122
  Serious: Yes (Other)
  Sender: FDA-Public Use
  Company Number: NVSC2019TW069087

PATIENT
  Age: 51 Year
  Sex: Female

DRUGS (9)
  1. KEMOCARB [Suspect]
     Active Substance: CARBOPLATIN
     Dosage: AUC5/ Q3W
     Route: 042
     Dates: start: 20190108, end: 20191014
  2. LIPO-DOX [Concomitant]
     Active Substance: DOXORUBICIN HYDROCHLORIDE
     Indication: OVARIAN CANCER
     Dosage: 30-40 MG/M2, Q3W
     Route: 042
     Dates: start: 20190108, end: 20191014
  3. AVASTIN [Concomitant]
     Active Substance: BEVACIZUMAB
     Indication: OVARIAN CANCER
     Dosage: 5-10 MG/KG, Q3W
     Route: 042
     Dates: start: 20190108
  4. KEMOCARB [Suspect]
     Active Substance: CARBOPLATIN
     Indication: OVARIAN CANCER
     Dosage: AUC5/ Q3W
     Route: 042
     Dates: start: 20170322, end: 20170823
  5. ADRIBLASTINA [Concomitant]
     Active Substance: DOXORUBICIN HYDROCHLORIDE
     Indication: OVARIAN CANCER
     Dosage: 35 MG/M2 FOR HIPEC
     Route: 042
     Dates: start: 20190423
  6. CISPLATIN. [Suspect]
     Active Substance: CISPLATIN
     Indication: OVARIAN CANCER
     Dosage: 50 MG/M2 IN NS 100 ML FOR HIPEC
     Route: 042
     Dates: start: 20190423, end: 20190423
  7. TAXOL [Suspect]
     Active Substance: PACLITAXEL
     Indication: OVARIAN CANCER
     Dosage: 175 MG/M2, Q3W
     Route: 042
     Dates: start: 20170322, end: 20170823
  8. GEMCITABINE. [Suspect]
     Active Substance: GEMCITABINE
     Indication: OVARIAN CANCER
     Dosage: 1000 MG/M2, ON D1, D8/Q3W
     Route: 042
     Dates: start: 20191115
  9. TYNEN [Suspect]
     Active Substance: DOCETAXEL
     Indication: OVARIAN CANCER
     Dosage: 75 MG/M2, Q3W
     Route: 042
     Dates: start: 20170322, end: 20170823

REACTIONS (5)
  - Metastases to liver [Unknown]
  - Ovarian cancer recurrent [Not Recovered/Not Resolved]
  - Disease progression [Unknown]
  - Urogenital fistula [Not Recovered/Not Resolved]
  - Malignant ascites [Unknown]

NARRATIVE: CASE EVENT DATE: 20170927
